FAERS Safety Report 25156957 (Version 3)
Quarter: 2025Q2

REPORT INFORMATION
  Report Type: Spontaneous
  Country: US (occurrence: US)
  Receive Date: 20250403
  Receipt Date: 20250428
  Transmission Date: 20250716
  Serious: Yes (Disabling, Other)
  Sender: ORGANON
  Company Number: US-ORGANON-O2503USA001176

PATIENT
  Age: 55 Year
  Sex: Male

DRUGS (2)
  1. ZOCOR [Suspect]
     Active Substance: SIMVASTATIN
     Indication: Blood cholesterol increased
     Dates: start: 2018
  2. ZOCOR [Suspect]
     Active Substance: SIMVASTATIN

REACTIONS (8)
  - Myopathy toxic [Not Recovered/Not Resolved]
  - Bacterial abdominal infection [Recovering/Resolving]
  - Dermatomyositis [Recovering/Resolving]
  - Constipation [Unknown]
  - Myositis [Unknown]
  - Headache [Unknown]
  - Muscle twitching [Unknown]
  - Physical product label issue [Unknown]

NARRATIVE: CASE EVENT DATE: 20180101
